FAERS Safety Report 15370905 (Version 1)
Quarter: 2018Q3

REPORT INFORMATION
  Report Type: Spontaneous
  Country: IR (occurrence: IR)
  Receive Date: 20180911
  Receipt Date: 20180911
  Transmission Date: 20181010
  Serious: Yes (Life-Threatening, Hospitalization)
  Sender: FDA-Public Use
  Company Number: IR-OXFORD PHARMACEUTICALS, LLC-2018OXF00092

PATIENT
  Age: 19 Year
  Sex: Female

DRUGS (1)
  1. IMIPRAMINE HYDROCHLORIDE. [Suspect]
     Active Substance: IMIPRAMINE HYDROCHLORIDE
     Dosage: UNSPECIFIED AMOUNT OF ^PILLS^; ONCE
     Route: 048

REACTIONS (10)
  - Loss of consciousness [Recovered/Resolved]
  - Pulse absent [Recovered/Resolved]
  - Ventricular fibrillation [Recovered/Resolved]
  - Drop attacks [Recovered/Resolved]
  - Toxicity to various agents [Recovered/Resolved]
  - Lethargy [Unknown]
  - Palpitations [Unknown]
  - Asthenia [Unknown]
  - Supraventricular tachycardia [Unknown]
  - Blood pressure decreased [Unknown]
